FAERS Safety Report 7854750-5 (Version None)
Quarter: 2011Q4

REPORT INFORMATION
  Report Type: 
  Country: None (occurrence: None)
  Receive Date: 20111026
  Receipt Date: 20110830
  Transmission Date: 20120403
  Serious: No
  Sender: FDA-Public Use
  Company Number: US-MUTUAL PHARMACEUTICAL COMPANY, INC.-CLCY20110120

PATIENT
  Sex: Female
  Weight: 68.1 kg

DRUGS (4)
  1. COLCRYS [Suspect]
     Route: 048
     Dates: start: 20110608
  2. OMEPRAZOLE [Concomitant]
     Indication: PROPHYLAXIS AGAINST GASTROINTESTINAL ULCER
     Route: 048
     Dates: start: 20100101
  3. PREDNISONE [Concomitant]
     Indication: PERICARDITIS
     Route: 048
     Dates: start: 20100101
  4. COLCRYS [Suspect]
     Indication: PERICARDITIS
     Route: 048
     Dates: start: 20110511, end: 20110607

REACTIONS (3)
  - PARAESTHESIA [None]
  - ALOPECIA [None]
  - OFF LABEL USE [None]
